FAERS Safety Report 13668934 (Version 1)
Quarter: 2017Q2

REPORT INFORMATION
  Report Type: Report from Study
  Country: None (occurrence: BR)
  Receive Date: 20170620
  Receipt Date: 20170620
  Transmission Date: 20170830
  Serious: Yes (Other)
  Sender: FDA-Public Use
  Company Number: BR-ABBVIE-17K-020-2010967-00

PATIENT
  Age: 50 Year
  Sex: Female
  Weight: 65 kg

DRUGS (4)
  1. HUMIRA [Suspect]
     Active Substance: ADALIMUMAB
     Indication: CROHN^S DISEASE
     Dosage: WEEK 0
     Route: 058
     Dates: start: 20170321, end: 20170321
  2. HUMIRA [Suspect]
     Active Substance: ADALIMUMAB
     Dosage: WEEK 2
     Route: 058
     Dates: start: 2017, end: 2017
  3. HUMIRA [Suspect]
     Active Substance: ADALIMUMAB
     Route: 058
     Dates: end: 20170530
  4. POLARAMINE [Concomitant]
     Active Substance: DEXCHLORPHENIRAMINE MALEATE
     Indication: PRODUCT USED FOR UNKNOWN INDICATION
     Dosage: STARTED SINCE SHE WAS A CHILD
     Route: 048
     Dates: end: 201704

REACTIONS (6)
  - Immunodeficiency [Unknown]
  - Stress [Unknown]
  - Fatigue [Recovering/Resolving]
  - Polyp [Unknown]
  - Leiomyoma [Recovered/Resolved]
  - Arrhythmia [Unknown]

NARRATIVE: CASE EVENT DATE: 201704
